FAERS Safety Report 18674484 (Version 1)
Quarter: 2020Q4

REPORT INFORMATION
  Report Type: Spontaneous
  Country: US (occurrence: US)
  Receive Date: 20201228
  Receipt Date: 20201228
  Transmission Date: 20210114
  Serious: Yes (Other)
  Sender: FDA-Public Use
  Company Number: US-BAUSCH-BL-2020-038430

PATIENT
  Sex: Male

DRUGS (2)
  1. SODIUM CHLORIDE HYPERTONICITY OPHTHALMIC SOLUTION 5% SOLUTION [Suspect]
     Active Substance: SODIUM CHLORIDE
     Indication: PRODUCT USED FOR UNKNOWN INDICATION
     Dosage: 1 DROP BEFORE BEDTIME
     Route: 065
  2. SYSTANE NOS [Concomitant]
     Active Substance: HYPROMELLOSE 2910 (4000 MPA.S)\ POLYETHYLENE GLYCOL 400\PROPYLENE GLYCOL
     Indication: DRY EYE

REACTIONS (1)
  - Eye haemorrhage [Unknown]
